FAERS Safety Report 23824596 (Version 1)
Quarter: 2024Q2

REPORT INFORMATION
  Report Type: Spontaneous
  Country: CN (occurrence: CN)
  Receive Date: 20240507
  Receipt Date: 20240507
  Transmission Date: 20240716
  Serious: Yes (Hospitalization, Disabling, Other)
  Sender: FDA-Public Use
  Company Number: CN-SA-SAC20240430001774

PATIENT
  Age: 55 Year
  Sex: Female
  Weight: 56 kg

DRUGS (4)
  1. ELOXATIN [Suspect]
     Active Substance: OXALIPLATIN
     Indication: Gastric cancer
     Dosage: 230 MG, QD
     Route: 041
     Dates: start: 20240407, end: 20240407
  2. GIMERACIL\OTERACIL\TEGAFUR [Suspect]
     Active Substance: GIMERACIL\OTERACIL POTASSIUM\TEGAFUR
     Indication: Gastric cancer
     Dosage: 60MG, BID
     Route: 048
     Dates: start: 20240407, end: 20240421
  3. TISLELIZUMAB [Concomitant]
     Active Substance: TISLELIZUMAB
     Indication: Gastric cancer
     Dosage: 200MG, QD
     Route: 041
     Dates: start: 20240407, end: 20240407
  4. CAPECITABINE [Concomitant]
     Active Substance: CAPECITABINE
     Dosage: UNK
     Dates: start: 20240407

REACTIONS (14)
  - Condition aggravated [Unknown]
  - Faeces discoloured [Unknown]
  - Poor quality sleep [Unknown]
  - Dysuria [Unknown]
  - Myelosuppression [Unknown]
  - Diarrhoea [Unknown]
  - Abdominal pain lower [Recovering/Resolving]
  - Decreased appetite [Unknown]
  - Asthenia [Unknown]
  - Septic shock [Unknown]
  - Haemorrhage [Unknown]
  - Agranulocytosis [Unknown]
  - Pyrexia [Unknown]
  - Diarrhoea [Unknown]

NARRATIVE: CASE EVENT DATE: 20240422
